FAERS Safety Report 22662955 (Version 2)
Quarter: 2023Q4

REPORT INFORMATION
  Report Type: Spontaneous
  Country: US (occurrence: US)
  Receive Date: 20230703
  Receipt Date: 20231120
  Transmission Date: 20240110
  Serious: Yes (Other)
  Sender: FDA-Public Use
  Company Number: US-ABBVIE-5312108

PATIENT
  Age: 80 Year
  Sex: Female

DRUGS (1)
  1. IMBRUVICA [Suspect]
     Active Substance: IBRUTINIB
     Indication: Product used for unknown indication
     Dosage: TIME INTERVAL: 0.33333333 DAYS: TAKE 3 CAPSULES BY MOUTH ONCE DAILY. CAPSULES SHOULD BE?TAKEN WIT...
     Route: 048

REACTIONS (4)
  - Myocardial infarction [Recovered/Resolved]
  - Onychoclasis [Unknown]
  - Atrial fibrillation [Unknown]
  - Alopecia [Unknown]

NARRATIVE: CASE EVENT DATE: 20230303
